FAERS Safety Report 19795251 (Version 1)
Quarter: 2021Q3

REPORT INFORMATION
  Report Type: Other
  Country: CN (occurrence: CN)
  Receive Date: 20210906
  Receipt Date: 20210906
  Transmission Date: 20211014
  Serious: Yes (Other)
  Sender: FDA-Public Use
  Company Number: CN-ROCHE-2901254

PATIENT

DRUGS (3)
  1. VINORELBINE [Suspect]
     Active Substance: VINORELBINE TARTRATE
     Indication: BREAST CANCER METASTATIC
     Dosage: ON DAYS 1 AND 5 OF TREATMENT, AND THE INJECTION WAS COMPLETED WITHIN 15 MIN.
     Route: 042
  2. TRASTUZUMAB. [Suspect]
     Active Substance: TRASTUZUMAB
     Indication: BREAST CANCER METASTATIC
     Dosage: FIRST DOSE, AND THEN GRADUALLY REDUCED TO 2 MG/KG, ONCE A WEEK. AT THE SAME TIME, THE INJECTION WAS
     Route: 042
  3. CISPLATIN. [Suspect]
     Active Substance: CISPLATIN
     Indication: BREAST CANCER METASTATIC
     Dosage: ON THE FIRST AND FIFTH DAYS OF TREATMENT, AND THE INJECTION WAS COMPLETED WITHIN 3 HOURS.
     Route: 042

REACTIONS (8)
  - Drug ineffective [Unknown]
  - Red blood cell count decreased [Unknown]
  - Nausea [Unknown]
  - Vomiting [Unknown]
  - Cardiotoxicity [Unknown]
  - Anaemia [Unknown]
  - White blood cell count decreased [Unknown]
  - Diarrhoea [Unknown]
